FAERS Safety Report 9776332 (Version 2)
Quarter: 2014Q1

REPORT INFORMATION
  Report Type: Spontaneous
  Country: CN (occurrence: CN)
  Receive Date: 20131220
  Receipt Date: 20140211
  Transmission Date: 20141002
  Serious: Yes (Other)
  Sender: FDA-Public Use
  Company Number: CN-ABBVIE-13P-035-1180420-00

PATIENT
  Age: 8 Year
  Sex: Female

DRUGS (2)
  1. DEPAKINE CHRONO [Suspect]
     Indication: EPILEPSY
     Dosage: EXTENDED RELEASE
     Route: 048
     Dates: start: 2013
  2. LAMOTRIGINE [Concomitant]
     Indication: PRODUCT USED FOR UNKNOWN INDICATION
     Dates: start: 20130815

REACTIONS (5)
  - Altered state of consciousness [Recovered/Resolved]
  - Convulsion [Recovered/Resolved]
  - Product counterfeit [Recovered/Resolved]
  - Hiccups [Recovered/Resolved]
  - Epilepsy [Recovered/Resolved]
